FAERS Safety Report 13002524 (Version 3)
Quarter: 2017Q1

REPORT INFORMATION
  Report Type: Spontaneous
  Country: FR (occurrence: FR)
  Receive Date: 20161206
  Receipt Date: 20170214
  Transmission Date: 20170428
  Serious: Yes (Hospitalization)
  Sender: FDA-Public Use
  Company Number: FR-JNJFOC-20161201157

PATIENT
  Age: 41 Year
  Sex: Female
  Weight: 98 kg

DRUGS (4)
  1. XEPLION [Suspect]
     Active Substance: PALIPERIDONE PALMITATE
     Indication: PSYCHOTIC DISORDER
     Dosage: DELTOID
     Route: 030
     Dates: start: 201604, end: 20161004
  2. XEPLION [Suspect]
     Active Substance: PALIPERIDONE PALMITATE
     Indication: PSYCHOTIC DISORDER
     Dosage: GLUTEAL
     Route: 030
     Dates: start: 20161212
  3. VALIUM [Concomitant]
     Active Substance: DIAZEPAM
     Indication: URINARY INCONTINENCE
     Route: 048
  4. LOXAPAC [Concomitant]
     Active Substance: LOXAPINE SUCCINATE
     Indication: ANXIETY
     Route: 048

REACTIONS (5)
  - Paraesthesia [Recovered/Resolved]
  - Erythema [Recovered/Resolved]
  - Inappropriate schedule of drug administration [Unknown]
  - Agitation [Unknown]
  - Hypotension [Unknown]

NARRATIVE: CASE EVENT DATE: 20161120
